FAERS Safety Report 6737811-3 (Version None)
Quarter: 2010Q2

REPORT INFORMATION
  Report Type: 
  Country: None (occurrence: None)
  Receive Date: 20100524
  Receipt Date: 20100518
  Transmission Date: 20101027
  Serious: Yes (Other)
  Sender: FDA-Public Use
  Company Number: CHPA2010CA08646

PATIENT
  Age: 71 Year
  Sex: Female

DRUGS (5)
  1. MAALOX MULTI-ACTION (NCH) [Suspect]
     Indication: ULCER
     Dosage: 3 TABLESPOONS OVER 5 DAY
     Route: 048
     Dates: end: 20100508
  2. MAALOX MULTI-ACTION (NCH) [Suspect]
     Indication: ERUCTATION
  3. MAALOX MULTI-ACTION (NCH) [Suspect]
     Indication: DYSPEPSIA
  4. LIPITOR [Concomitant]
     Indication: BLOOD CHOLESTEROL
     Dosage: UNK, UNK
  5. DITROPAN [Concomitant]
     Indication: BLADDER DISORDER
     Dosage: UNK, UNK

REACTIONS (3)
  - FAECES DISCOLOURED [None]
  - OFF LABEL USE [None]
  - WRONG DRUG ADMINISTERED [None]
